FAERS Safety Report 15965968 (Version 3)
Quarter: 2019Q2

REPORT INFORMATION
  Report Type: Spontaneous
  Country: US (occurrence: US)
  Receive Date: 20190215
  Receipt Date: 20190425
  Transmission Date: 20190711
  Serious: No
  Sender: FDA-Public Use
  Company Number: US-PFIZER INC-2019066925

PATIENT
  Age: 69 Year
  Sex: Female
  Weight: 81.63 kg

DRUGS (5)
  1. CYTOMEL [Suspect]
     Active Substance: LIOTHYRONINE SODIUM
     Dosage: UNK
  2. CYTOMEL [Suspect]
     Active Substance: LIOTHYRONINE SODIUM
     Indication: THYROID DISORDER
     Dosage: 60 UG, DAILY (7 TABLETS IN THE MORNING AND 5 TABLETS IN THE EVENING DAILY)
     Route: 048
     Dates: start: 2009
  3. CYTOMEL [Suspect]
     Active Substance: LIOTHYRONINE SODIUM
     Dosage: UNK
     Dates: start: 20181020, end: 20181025
  4. CYTOMEL [Suspect]
     Active Substance: LIOTHYRONINE SODIUM
     Dosage: 5 MG, UNK
  5. CYTOMEL [Suspect]
     Active Substance: LIOTHYRONINE SODIUM
     Dosage: 50 UG, UNK (CYTOMEL 5 MCG, 6 TABLET IN MORNING (30) MCG, 4 TABLET IN EVENING (20) MCG)
     Dates: start: 20181008, end: 20181013

REACTIONS (2)
  - Feeling abnormal [Recovered/Resolved]
  - Circumstance or information capable of leading to medication error [Recovered/Resolved]
